FAERS Safety Report 10286628 (Version 3)
Quarter: 2017Q2

REPORT INFORMATION
  Report Type: Spontaneous
  Country: BR (occurrence: BR)
  Receive Date: 20140709
  Receipt Date: 20170605
  Transmission Date: 20170829
  Serious: Yes (Hospitalization)
  Sender: FDA-Public Use
  Company Number: BR-SA-2014SA086718

PATIENT
  Age: 82 Year
  Sex: Female
  Weight: 59 kg

DRUGS (10)
  1. ARADOIS [Concomitant]
     Active Substance: LOSARTAN POTASSIUM
     Dosage: OVER 20 YRS/ 25 MG TABLET
     Route: 065
  2. LANTUS [Suspect]
     Active Substance: INSULIN GLARGINE
     Indication: TYPE 2 DIABETES MELLITUS
     Route: 058
  3. APIDRA SOLOSTAR [Concomitant]
     Active Substance: INSULIN GLULISINE
     Route: 065
     Dates: start: 2015
  4. FUROSEMIDE. [Concomitant]
     Active Substance: FUROSEMIDE
     Dosage: 40 MG
     Route: 065
  5. ABEPOTEN [Concomitant]
     Dosage: OVER 20YEARS
     Route: 065
  6. SOLOSTAR [Concomitant]
     Active Substance: DEVICE
     Dates: start: 2015
  7. INSULIN [Concomitant]
     Active Substance: INSULIN NOS
  8. LANTUS [Suspect]
     Active Substance: INSULIN GLARGINE
     Indication: TYPE 2 DIABETES MELLITUS
     Route: 058
     Dates: start: 2015
  9. SPIRONOLACTONE. [Concomitant]
     Active Substance: SPIRONOLACTONE
     Dosage: OVER 20 YEARS
     Route: 065
  10. SINVASCOR [Concomitant]
     Active Substance: SIMVASTATIN
     Dosage: 40 MG TABLET
     Route: 065

REACTIONS (4)
  - Cardiac disorder [Unknown]
  - Chronic kidney disease [Unknown]
  - Respiratory disorder [Unknown]
  - Blood pressure abnormal [Unknown]
